FAERS Safety Report 5501409-5 (Version None)
Quarter: 2007Q4

REPORT INFORMATION
  Report Type: 
  Country: None (occurrence: None)
  Receive Date: 20071018
  Receipt Date: 20070308
  Transmission Date: 20080405
  Serious: Yes (Death)
  Sender: FDA-Public Use
  Company Number: 2007020171

PATIENT
  Age: 45 Year
  Sex: Male

DRUGS (4)
  1. NEURONTIN [Suspect]
     Indication: DIABETIC NEUROPATHY
     Dosage: 1200 MG (1 D)
     Dates: start: 19990406, end: 20000513
  2. PAXIL [Concomitant]
  3. TRAZODONE HCL [Concomitant]
  4. HUMALOG [Concomitant]

REACTIONS (1)
  - COMPLETED SUICIDE [None]
